FAERS Safety Report 4554662-9 (Version None)
Quarter: 2005Q1

REPORT INFORMATION
  Report Type: 
  Country: None (occurrence: None)
  Receive Date: 20050118
  Receipt Date: 20041216
  Transmission Date: 20050727
  Serious: Yes (Death, Hospitalization)
  Sender: FDA-Public Use
  Company Number: US-BRISTOL-MYERS SQUIBB COMPANY-12798914

PATIENT
  Age: 74 Year
  Sex: Female

DRUGS (2)
  1. ERBITUX [Suspect]
     Indication: COLORECTAL CANCER
     Dosage: SCHEDULED TO RECEIVE 400 MG/M2.
     Route: 042
     Dates: start: 20041118, end: 20041118
  2. BENADRYL [Concomitant]
     Indication: PREMEDICATION
     Route: 042
     Dates: start: 20041118, end: 20041118

REACTIONS (5)
  - BLOOD PRESSURE IMMEASURABLE [None]
  - COMA [None]
  - DEATH [None]
  - FEELING ABNORMAL [None]
  - INFUSION RELATED REACTION [None]
